FAERS Safety Report 21986533 (Version 1)
Quarter: 2023Q1

REPORT INFORMATION
  Report Type: Spontaneous
  Country: US (occurrence: None)
  Receive Date: 20230210
  Receipt Date: 20230210
  Transmission Date: 20230417
  Serious: No
  Sender: FDA-Public Use
  Company Number: None

PATIENT
  Age: 64 Year
  Sex: Male
  Weight: 58.51 kg

DRUGS (8)
  1. CAPECITABINE [Suspect]
     Active Substance: CAPECITABINE
     Indication: Gastric cancer
     Dosage: FREQUENCY : TWICE A DAY;?
     Route: 048
     Dates: start: 202210
  2. ARIPIPRAZOLE [Concomitant]
  3. BACLOFEN [Concomitant]
  4. CAPECITABINE [Concomitant]
  5. DIVALPROEX [Concomitant]
  6. FAMOTIDINE [Concomitant]
  7. PREDNISONE [Concomitant]
  8. SENOKOT{OTC} [Concomitant]

REACTIONS (3)
  - Hospice care [None]
  - Gastric cancer [None]
  - Malignant neoplasm progression [None]
